FAERS Safety Report 25901489 (Version 1)
Quarter: 2025Q4

REPORT INFORMATION
  Report Type: Spontaneous
  Country: US (occurrence: US)
  Receive Date: 20251009
  Receipt Date: 20251009
  Transmission Date: 20260117
  Serious: Yes (Hospitalization, Other)
  Sender: NOVO NORDISK
  Company Number: US-NOVOPROD-1534747

PATIENT
  Age: 64 Year
  Sex: Male

DRUGS (4)
  1. VICTOZA [Concomitant]
     Active Substance: LIRAGLUTIDE
     Indication: Type 2 diabetes mellitus
     Dosage: UNK
  2. NOVOLOG [Suspect]
     Active Substance: INSULIN ASPART
     Indication: Type 2 diabetes mellitus
     Dosage: UNK, SLIDING SCALE
     Route: 058
     Dates: start: 2012
  3. LANTUS [Suspect]
     Active Substance: INSULIN GLARGINE
     Indication: Type 2 diabetes mellitus
     Dosage: 30 U, BID (30 UNITS AM, 30 UNITS PM)
     Dates: start: 2012
  4. AMLODIPINE [Suspect]
     Active Substance: AMLODIPINE BESYLATE
     Indication: Hypertension
     Dosage: UNK
     Dates: end: 202503

REACTIONS (15)
  - Road traffic accident [Recovered/Resolved]
  - Clavicle fracture [Recovered/Resolved]
  - Fracture [Recovered/Resolved]
  - Rib fracture [Recovered/Resolved]
  - Lower limb fracture [Recovered/Resolved]
  - Limb injury [Recovered/Resolved]
  - Cataract [Not Recovered/Not Resolved]
  - Eye operation [Recovered/Resolved]
  - Angina pectoris [Recovered/Resolved]
  - Drug hypersensitivity [Unknown]
  - Vitreous floaters [Not Recovered/Not Resolved]
  - Anxiety [Unknown]
  - Oral mucosal scar [Recovering/Resolving]
  - Blood pressure increased [Recovered/Resolved]
  - Hypotension [Not Recovered/Not Resolved]

NARRATIVE: CASE EVENT DATE: 20150101
